FAERS Safety Report 5468368-5 (Version None)
Quarter: 2007Q3

REPORT INFORMATION
  Report Type: 
  Country: None (occurrence: None)
  Receive Date: 20070926
  Receipt Date: 20070924
  Transmission Date: 20080115
  Serious: Yes (Life-Threatening)
  Sender: FDA-Public Use
  Company Number: B0488460A

PATIENT
  Age: 33 Year
  Sex: Male

DRUGS (9)
  1. ARTIST [Suspect]
     Indication: CARDIAC HYPERTROPHY
     Route: 048
     Dates: end: 20070515
  2. KREMEZIN [Concomitant]
  3. LASIX [Concomitant]
  4. DIOVAN [Concomitant]
  5. AMLODIPINE [Concomitant]
  6. CALTAN [Concomitant]
  7. LANDEL [Concomitant]
  8. DOXAZOSIN MESYLATE [Concomitant]
  9. ALLOPURINOL [Concomitant]

REACTIONS (6)
  - BRADYCARDIA [None]
  - CARDIAC FAILURE [None]
  - CARDIO-RESPIRATORY ARREST [None]
  - LOSS OF CONSCIOUSNESS [None]
  - MENTAL DISORDER [None]
  - OVERDOSE [None]
